FAERS Safety Report 12968202 (Version 1)
Quarter: 2016Q4

REPORT INFORMATION
  Report Type: Spontaneous
  Country: None (occurrence: None)
  Receive Date: 20161122
  Receipt Date: 20161122
  Transmission Date: 20170207
  Serious: Yes (Other)
  Sender: FDA-Public Use
  Company Number: 20161013

PATIENT
  Age: 25 Year
  Sex: Male

DRUGS (1)
  1. DIPHENHYDRAMINE HCL 25MG MANUF:AAA PHARMACEUTICAL [Suspect]
     Active Substance: DIPHENHYDRAMINE HYDROCHLORIDE
     Indication: INSOMNIA
     Route: 048
     Dates: start: 20161009

REACTIONS (1)
  - Dizziness [None]

NARRATIVE: CASE EVENT DATE: 20161010
